FAERS Safety Report 19815073 (Version 2)
Quarter: 2021Q4

REPORT INFORMATION
  Report Type: Spontaneous
  Country: SE (occurrence: SE)
  Receive Date: 20210910
  Receipt Date: 20211018
  Transmission Date: 20220303
  Serious: Yes (Other)
  Sender: FDA-Public Use
  Company Number: SE-BAYER-2021-203863

PATIENT
  Age: 33 Year
  Sex: Female

DRUGS (4)
  1. KYLEENA [Suspect]
     Active Substance: LEVONORGESTREL
     Dosage: 17.5 ?G, CONT
     Route: 015
     Dates: start: 20181228
  2. PIPERACILLIN. [Concomitant]
     Active Substance: PIPERACILLIN SODIUM
     Indication: Streptococcal sepsis
     Dosage: UNK
     Dates: start: 201812, end: 201901
  3. TAZOBACTAM [Concomitant]
     Active Substance: TAZOBACTAM
     Indication: Streptococcal sepsis
     Dosage: UNK
     Dates: start: 201812, end: 201901
  4. FLAGYL [Concomitant]
     Active Substance: METRONIDAZOLE\METRONIDAZOLE HYDROCHLORIDE
     Indication: Streptococcal sepsis
     Dosage: UNK
     Dates: start: 201901, end: 201901

REACTIONS (6)
  - Genital haemorrhage [None]
  - Renal disorder [None]
  - Device use issue [None]
  - Abdominal pain upper [None]
  - Amenorrhoea [None]
  - Dysmenorrhoea [None]

NARRATIVE: CASE EVENT DATE: 20181228
